FAERS Safety Report 10887009 (Version 1)
Quarter: 2015Q1

REPORT INFORMATION
  Report Type: Spontaneous
  Country: US (occurrence: US)
  Receive Date: 20150304
  Receipt Date: 20150304
  Transmission Date: 20150721
  Serious: Yes (Hospitalization, Other)
  Sender: FDA-Public Use
  Company Number: US-PFIZER INC-2015080515

PATIENT
  Age: 59 Year
  Sex: Male

DRUGS (19)
  1. CLONIDINE. [Suspect]
     Active Substance: CLONIDINE
     Dosage: UNK
     Route: 037
     Dates: start: 20140513
  2. FLUTICASONE [Suspect]
     Active Substance: FLUTICASONE\FLUTICASONE PROPIONATE
     Dosage: UNK
     Route: 048
  3. LOSARTAN [Suspect]
     Active Substance: LOSARTAN
     Dosage: UNK
     Route: 048
  4. SUFENTANIL [Suspect]
     Active Substance: SUFENTANIL
     Dosage: 24.9 MCG PER DAY
     Route: 037
  5. BENZONATATE. [Suspect]
     Active Substance: BENZONATATE
     Dosage: UNK
     Route: 048
  6. BUPIVACAINE [Suspect]
     Active Substance: BUPIVACAINE
     Dosage: 7.257 MG PER DAY
     Route: 037
  7. FENOFIBRATE. [Suspect]
     Active Substance: FENOFIBRATE
     Dosage: UNK
     Route: 048
  8. BACLOFEN. [Suspect]
     Active Substance: BACLOFEN
     Indication: PAIN
     Dosage: 27.21 MCG/DAY
     Route: 037
  9. CITALOPRAM [Suspect]
     Active Substance: CITALOPRAM HYDROBROMIDE
     Dosage: UNK
     Route: 048
  10. PANTOPRAZOLE [Suspect]
     Active Substance: PANTOPRAZOLE SODIUM
     Dosage: UNK
     Route: 048
  11. CLONIDINE. [Suspect]
     Active Substance: CLONIDINE
     Dosage: 589.7 MCG/DAY
     Route: 037
  12. VICTOZA [Suspect]
     Active Substance: LIRAGLUTIDE
     Dosage: UNK
     Route: 048
  13. METFORMIN [Suspect]
     Active Substance: METFORMIN HYDROCHLORIDE
     Dosage: UNK
     Route: 048
  14. ALLEGRA [Suspect]
     Active Substance: FEXOFENADINE HYDROCHLORIDE
     Dosage: UNK
     Route: 048
  15. BACLOFEN. [Suspect]
     Active Substance: BACLOFEN
     Dosage: UNK
     Route: 037
     Dates: start: 20140513
  16. BUPIVACAINE [Suspect]
     Active Substance: BUPIVACAINE
     Dosage: UNK
     Route: 037
     Dates: start: 20140513
  17. SUFENTANIL [Suspect]
     Active Substance: SUFENTANIL
     Dosage: UNK
     Route: 037
     Dates: start: 20140513
  18. PRAVASTATIN [Suspect]
     Active Substance: PRAVASTATIN\PRAVASTATIN SODIUM
     Dosage: UNK
     Route: 048
  19. BACLOFEN. [Suspect]
     Active Substance: BACLOFEN
     Dosage: UNK
     Route: 048

REACTIONS (8)
  - Feeling cold [Recovered/Resolved]
  - Therapeutic response decreased [Recovered/Resolved]
  - Back pain [Recovered/Resolved]
  - Underdose [Recovered/Resolved]
  - Tremor [Recovered/Resolved]
  - Post laminectomy syndrome [Recovered/Resolved]
  - Radicular pain [Recovered/Resolved]
  - Drug withdrawal syndrome [Recovered/Resolved]
